FAERS Safety Report 8053157-8 (Version None)
Quarter: 2012Q1

REPORT INFORMATION
  Report Type: 
  Country: None (occurrence: None)
  Receive Date: 20120118
  Receipt Date: 20120111
  Transmission Date: 20120608
  Serious: Yes (Other)
  Sender: FDA-Public Use
  Company Number: US-JNJFOC-20120105551

PATIENT
  Age: 44 Year
  Sex: Female
  Weight: 68.04 kg

DRUGS (4)
  1. VITAMIN B-12 [Concomitant]
     Indication: VITAMIN B12 DEFICIENCY
     Route: 050
  2. PEPCID COMPLETE [Suspect]
     Indication: DYSPEPSIA
     Route: 048
     Dates: start: 20070101, end: 20110526
  3. ASTHMA INHALERS [Concomitant]
     Indication: ASTHMA
  4. PEPCID COMPLETE [Suspect]
     Route: 048

REACTIONS (9)
  - FEELING ABNORMAL [None]
  - JOINT SWELLING [None]
  - CONDITION AGGRAVATED [None]
  - ASTHMA [None]
  - HYPERSENSITIVITY [None]
  - RASH [None]
  - INFLAMMATION [None]
  - THYROID DISORDER [None]
  - ARTHRALGIA [None]
